FAERS Safety Report 8406080-0 (Version None)
Quarter: 2012Q2

REPORT INFORMATION
  Report Type: 
  Country: None (occurrence: None)
  Receive Date: 20120604
  Receipt Date: 20120529
  Transmission Date: 20120825
  Serious: Yes (Hospitalization)
  Sender: FDA-Public Use
  Company Number: DE-JNJFOC-20100603008

PATIENT
  Age: 33 Year
  Sex: Male
  Weight: 117 kg

DRUGS (3)
  1. RISPERDAL CONSTA [Suspect]
     Indication: SCHIZOPHRENIA, PARANOID TYPE
     Route: 030
     Dates: start: 20091005
  2. PIPAMPERONE NEURAX [Suspect]
     Indication: SCHIZOPHRENIA, PARANOID TYPE
     Route: 065
     Dates: start: 20100104
  3. RISPERDAL CONSTA [Suspect]
     Route: 030
     Dates: start: 20100214

REACTIONS (1)
  - AGGRESSION [None]
